FAERS Safety Report 5285989-3 (Version None)
Quarter: 2007Q2

REPORT INFORMATION
  Report Type: 
  Country: None (occurrence: None)
  Receive Date: 20070404
  Receipt Date: 20070322
  Transmission Date: 20071010
  Serious: Yes (Other)
  Sender: FDA-Public Use
  Company Number: GB-PFIZER INC-2007023551

PATIENT
  Age: 46 Year
  Sex: Male
  Weight: 84 kg

DRUGS (4)
  1. LINEZOLID [Suspect]
     Indication: STAPHYLOCOCCAL INFECTION
     Route: 048
     Dates: start: 20070213, end: 20070220
  2. FLOXACILLIN SODIUM [Concomitant]
     Route: 048
     Dates: start: 20070125, end: 20070202
  3. PENICILLIN V [Concomitant]
     Route: 048
     Dates: start: 20070126, end: 20070203
  4. ZOPICLONE [Concomitant]
     Route: 048

REACTIONS (4)
  - FLUSHING [None]
  - HYPERTENSION [None]
  - PARAESTHESIA [None]
  - STOMATITIS [None]
